FAERS Safety Report 17436039 (Version 1)
Quarter: 2020Q1

REPORT INFORMATION
  Report Type: Spontaneous
  Country: SE (occurrence: SE)
  Receive Date: 20200219
  Receipt Date: 20200219
  Transmission Date: 20200409
  Serious: Yes (Life-Threatening)
  Sender: FDA-Public Use
  Company Number: SE-MYLANLABS-2020M1018583

PATIENT
  Age: 89 Year
  Sex: Female

DRUGS (10)
  1. LIVOSTIN [Concomitant]
     Active Substance: LEVOCABASTINE HYDROCHLORIDE
     Dosage: VID BEHOV
  2. DESLORATADIN [Concomitant]
     Active Substance: DESLORATADINE
     Dosage: VID BEHOV
     Route: 065
  3. OVESTERIN [Concomitant]
     Active Substance: ESTRIOL
     Dosage: UNK
     Route: 065
  4. AMLODIPIN                          /00972401/ [Concomitant]
     Active Substance: AMLODIPINE BESYLATE
     Dosage: UNK
     Route: 065
  5. ZOPIKLON [Concomitant]
     Active Substance: ZOPICLONE
     Dosage: UNK
     Route: 065
  6. MORPHINE [Suspect]
     Active Substance: MORPHINE
     Indication: PAIN
     Dosage: 5 MILLIGRAM
     Route: 042
     Dates: start: 20190917
  7. HYDROKLORTIAZID [Concomitant]
     Dosage: UNK
     Route: 065
  8. CITALOPRAM [Concomitant]
     Active Substance: CITALOPRAM HYDROBROMIDE
     Dosage: UNK
     Route: 065
  9. CILAXORAL [Concomitant]
     Active Substance: SODIUM PICOSULFATE
     Dosage: VID BEHOV
  10. TROMBYL [Concomitant]
     Active Substance: ASPIRIN
     Dosage: UNK
     Route: 065

REACTIONS (3)
  - Depressed level of consciousness [Recovered/Resolved]
  - Toxicity to various agents [Recovered/Resolved]
  - Respiratory depression [Recovered/Resolved]

NARRATIVE: CASE EVENT DATE: 20190917
